FAERS Safety Report 5521157-5 (Version None)
Quarter: 2007Q4

REPORT INFORMATION
  Report Type: 
  Country: None (occurrence: None)
  Receive Date: 20071119
  Receipt Date: 20071109
  Transmission Date: 20080405
  Serious: Yes (Other)
  Sender: FDA-Public Use
  Company Number: FR-ASTRAZENECA-2007CG01617

PATIENT
  Sex: Male

DRUGS (1)
  1. RHINOCORT [Suspect]
     Indication: RHINITIS
     Route: 045
     Dates: end: 20070101

REACTIONS (1)
  - OCULAR HYPERTENSION [None]
